FAERS Safety Report 4387964-X (Version None)
Quarter: 2004Q2

REPORT INFORMATION
  Report Type: 
  Country: None (occurrence: None)
  Receive Date: 20040607
  Receipt Date: 20040130
  Transmission Date: 20050107
  Serious: Yes (Other)
  Sender: FDA-Public Use
  Company Number: 357841

PATIENT
  Age: 25 Year
  Sex: Male
  Weight: 72.6 kg

DRUGS (4)
  1. ACCUTANE [Suspect]
     Indication: ACNE CYSTIC
     Dosage: 40 MG 2 PER DAY ORAL
     Route: 048
     Dates: start: 19840611, end: 19841015
  2. ACCUTANE [Suspect]
     Indication: SCAR
     Dosage: 40 MG 2 PER DAY ORAL
     Route: 048
     Dates: start: 19840611, end: 19841015
  3. DIMETAPP (BROMPHENIRAMINE MALEATE/*PHENYLEPHRINE HYDROCHLORIDE/PHENYLP [Concomitant]
  4. EYE DROPS (OPHTHALMIC DRUG NOS) [Concomitant]

REACTIONS (6)
  - ADVERSE EVENT [None]
  - DRY SKIN [None]
  - FATIGUE [None]
  - FEELING GUILTY [None]
  - LIP DRY [None]
  - MENTAL DISORDER [None]
